FAERS Safety Report 25350712 (Version 1)
Quarter: 2025Q2

REPORT INFORMATION
  Report Type: Spontaneous
  Country: GB (occurrence: GB)
  Receive Date: 20250523
  Receipt Date: 20250523
  Transmission Date: 20250717
  Serious: Yes (Hospitalization, Other)
  Sender: TEVA
  Company Number: None

PATIENT
  Age: 85 Year
  Sex: Female

DRUGS (25)
  1. SPIRONOLACTONE [Suspect]
     Active Substance: SPIRONOLACTONE
     Indication: Product used for unknown indication
     Dosage: 28 TABLET-B1- AKI CLINIC FU ON DISCHARGE
     Route: 065
     Dates: start: 20250122
  2. PROCHLORPERAZINE [Concomitant]
     Active Substance: PROCHLORPERAZINE
     Indication: Product used for unknown indication
     Dosage: PRN,50 TABLET -PT TAKES PRN.
     Dates: start: 20250203
  3. MICONAZOLE NITRATE [Concomitant]
     Active Substance: MICONAZOLE NITRATE
     Indication: Product used for unknown indication
  4. ALLOPURINOL [Concomitant]
     Active Substance: ALLOPURINOL
     Indication: Product used for unknown indication
     Dosage: 28 TABLET -B1**
     Dates: start: 20250122
  5. BISOPROLOL [Concomitant]
     Active Substance: BISOPROLOL
     Indication: Product used for unknown indication
     Dosage: 56 TABLET -B1**
     Dates: start: 20250122
  6. BISOPROLOL [Concomitant]
     Active Substance: BISOPROLOL
     Indication: Product used for unknown indication
     Dosage: 56 TABLET -B1**
     Dates: start: 20250122
  7. DIGOXIN [Concomitant]
     Active Substance: DIGOXIN
     Indication: Product used for unknown indication
     Dosage: 28 TABLET -B1**
     Dates: start: 20250122
  8. LOSARTAN [Suspect]
     Active Substance: LOSARTAN
     Indication: Product used for unknown indication
     Dosage: 28 TABLET- B 1
     Route: 065
     Dates: start: 20250122
  9. LERCANIDIPINE [Concomitant]
     Active Substance: LERCANIDIPINE
     Indication: Product used for unknown indication
     Dosage: 28 TABLETS -B1
     Dates: start: 20250122
  10. FUROSEMIDE [Concomitant]
     Active Substance: FUROSEMIDE
     Indication: Product used for unknown indication
     Dosage: IN THE MORNING AND AT LUNCHTIME, 56 TABLET -B1,2**
     Dates: start: 20250122
  11. EDOXABAN [Concomitant]
     Active Substance: EDOXABAN
     Indication: Product used for unknown indication
     Dosage: 28 TABLET -B1
     Dates: start: 20250122
  12. NITROFURANTOIN [Concomitant]
     Active Substance: NITROFURANTOIN
     Indication: Product used for unknown indication
     Dosage: MODIFIED-RELEASE CAPSULES,10 CA- STATES NOT FINISHED
     Dates: start: 20250207
  13. Spikevax XBB.1.5 [Concomitant]
     Indication: Product used for unknown indication
     Route: 030
     Dates: start: 20240614, end: 20240614
  14. ALBUTEROL [Concomitant]
     Active Substance: ALBUTEROL
     Indication: Product used for unknown indication
     Dates: start: 20241210
  15. ENSURE [Concomitant]
     Active Substance: AMINO ACIDS\DEXTROSE\ELECTROLYTES NOS\SOYBEAN OIL\VITAMINS
     Indication: Product used for unknown indication
     Dosage: MILKSHAKE STYLE LIQUID BANANA (ABBOTT LABORATORIES LTD), AS DIRECTED,14 X- PT STATES 1 OD
     Dates: start: 20250127
  16. Comirnaty [Concomitant]
     Indication: Product used for unknown indication
     Route: 030
     Dates: start: 20241120, end: 20241120
  17. OMEPRAZOLE [Concomitant]
     Active Substance: OMEPRAZOLE
     Indication: Product used for unknown indication
     Dosage: 28 CAPSULE - OUTSIDE B/P. STATES PRN ONLY.**
     Dates: start: 20250122
  18. BUTYLSCOPOLAMINE BROMIDE [Concomitant]
     Active Substance: BUTYLSCOPOLAMINE BROMIDE
     Indication: Product used for unknown indication
     Dates: start: 20250204
  19. EZETIMIBE [Concomitant]
     Active Substance: EZETIMIBE
     Indication: Product used for unknown indication
     Dosage: 28 TABLET -B1**
     Dates: start: 20250122
  20. ROSUVASTATIN [Concomitant]
     Active Substance: ROSUVASTATIN
     Indication: Product used for unknown indication
     Dates: start: 20250122
  21. ONDANSETRON [Concomitant]
     Active Substance: ONDANSETRON
     Indication: Product used for unknown indication
     Dates: start: 20250204
  22. LEVOTHYROXINE [Concomitant]
     Active Substance: LEVOTHYROXINE
     Indication: Product used for unknown indication
     Dosage: 28 TABLET - OUTSIDE B/ P**
     Dates: start: 20250122
  23. TRIMETHOPRIM [Concomitant]
     Active Substance: TRIMETHOPRIM
     Indication: Product used for unknown indication
     Dosage: 4 TABLET -COMPLETED. +NBSP;**
     Dates: start: 20250130
  24. DAPAGLIFLOZIN [Concomitant]
     Active Substance: DAPAGLIFLOZIN
     Indication: Product used for unknown indication
     Dosage: 28 TABLET -B1**
     Dates: start: 20250122
  25. BECLOMETHASONE\FORMOTEROL [Concomitant]
     Active Substance: BECLOMETHASONE\FORMOTEROL
     Indication: Product used for unknown indication
     Dosage: FORM STRENGTH: 100MICROGRAMS/DOSE / 6MICROGRAMS/DOSE INHALER (CHIESI LTD), 2 X 120 DOSE**, RESPIR...
     Dates: start: 20250122

REACTIONS (1)
  - Acute kidney injury [Unknown]
